FAERS Safety Report 4380102-9 (Version None)
Quarter: 2004Q2

REPORT INFORMATION
  Report Type: 
  Country: None (occurrence: None)
  Receive Date: 20040616
  Receipt Date: 20040604
  Transmission Date: 20050107
  Serious: Yes (Death, Hospitalization)
  Sender: FDA-Public Use
  Company Number: A-US2002-00003

PATIENT
  Age: 77 Year
  Sex: Male
  Weight: 63.5 kg

DRUGS (8)
  1. TRACLEER [Suspect]
     Indication: PULMONARY HYPERTENSION
     Dosage: 62.5 MG, BID, ORAL
     Route: 048
     Dates: start: 20020118, end: 20020124
  2. COUMADIN [Concomitant]
  3. CIPRO [Concomitant]
  4. LANOXIN [Concomitant]
  5. LASIX [Concomitant]
  6. PREDNISONE [Concomitant]
  7. K-DUR 10 [Concomitant]
  8. OXYGENH (OXYGEN) [Concomitant]

REACTIONS (15)
  - ABDOMINAL DISCOMFORT [None]
  - ALANINE AMINOTRANSFERASE INCREASED [None]
  - ANOREXIA [None]
  - ASPARTATE AMINOTRANSFERASE INCREASED [None]
  - BLOOD CREATINE PHOSPHOKINASE INCREASED [None]
  - BRONCHITIS [None]
  - CHILLS [None]
  - CONDITION AGGRAVATED [None]
  - JAUNDICE [None]
  - LIVER FUNCTION TEST ABNORMAL [None]
  - OEDEMA PERIPHERAL [None]
  - PITTING OEDEMA [None]
  - PNEUMONIA [None]
  - PULMONARY CONGESTION [None]
  - TROPONIN I INCREASED [None]
